FAERS Safety Report 4837467-0 (Version None)
Quarter: 2005Q4

REPORT INFORMATION
  Report Type: 
  Country: None (occurrence: None)
  Receive Date: 20051128
  Receipt Date: 20051115
  Transmission Date: 20060501
  Serious: Yes (Hospitalization)
  Sender: FDA-Public Use
  Company Number: DE-JNJFOC-20051103881

PATIENT
  Age: 80 Year
  Sex: Male

DRUGS (13)
  1. RISPERDAL [Suspect]
     Route: 048
  2. RISPERDAL [Suspect]
     Route: 048
  3. RISPERDAL [Suspect]
     Route: 048
  4. RISPERDAL [Suspect]
     Indication: DRUG USE FOR UNKNOWN INDICATION
     Route: 048
  5. REMINYL [Suspect]
     Indication: DRUG USE FOR UNKNOWN INDICATION
     Route: 048
  6. DELIX [Concomitant]
     Route: 048
  7. FOLIC ACID [Concomitant]
  8. DECOSTRIOL [Concomitant]
  9. ASPIRIN [Concomitant]
     Route: 048
  10. DISTRANEURIN [Concomitant]
     Route: 048
  11. DISTRANEURIN [Concomitant]
     Route: 048
  12. DISTRANEURIN [Concomitant]
     Route: 048
  13. DISTRANEURIN [Concomitant]
     Route: 048

REACTIONS (3)
  - FALL [None]
  - FEMORAL NECK FRACTURE [None]
  - PLEUROTHOTONUS [None]
